FAERS Safety Report 10909899 (Version 1)
Quarter: 2015Q1

REPORT INFORMATION
  Report Type: Spontaneous
  Country: IT (occurrence: IT)
  Receive Date: 20150312
  Receipt Date: 20150312
  Transmission Date: 20150721
  Serious: Yes (Other)
  Sender: FDA-Public Use
  Company Number: IT-PFIZER INC-2015090537

PATIENT
  Age: 3 Year
  Sex: Male

DRUGS (1)
  1. CEFODOX [Suspect]
     Active Substance: CEFPODOXIME PROXETIL
     Indication: PNEUMONITIS
     Dosage: UNK
     Route: 065
     Dates: start: 20131107, end: 20131108

REACTIONS (2)
  - Apnoea [Recovered/Resolved]
  - Urticaria [Recovered/Resolved]
